FAERS Safety Report 7444554-X (Version None)
Quarter: 2011Q2

REPORT INFORMATION
  Report Type: 
  Country: None (occurrence: None)
  Receive Date: 20110429
  Receipt Date: 20110418
  Transmission Date: 20111010
  Serious: Yes (Other)
  Sender: FDA-Public Use
  Company Number: US-ASTRAZENECA-2007UW03201

PATIENT
  Age: 449 Month
  Sex: Male
  Weight: 103 kg

DRUGS (14)
  1. TOPAMAX [Concomitant]
     Dates: start: 20000104
  2. REMERON [Concomitant]
     Dates: start: 20000315
  3. SEROQUEL [Suspect]
     Indication: DEPRESSION
     Route: 048
     Dates: start: 20000315
  4. GEODON [Concomitant]
  5. TEMAZEPAM [Concomitant]
     Dates: start: 20060101
  6. ABILIFY [Concomitant]
  7. SEROQUEL [Suspect]
     Route: 048
     Dates: start: 20000318, end: 20060306
  8. PROCARDIA XL [Concomitant]
     Dates: start: 20000201
  9. VASOTEC [Concomitant]
     Dates: start: 20000201
  10. TRAZODONE [Concomitant]
  11. ZOCOR [Concomitant]
     Dates: start: 20000418
  12. RISPERDAL [Concomitant]
  13. PAXIL [Concomitant]
     Dates: start: 20100101
  14. PRISTIQ [Concomitant]

REACTIONS (5)
  - GALLBLADDER DISORDER [None]
  - CARDIAC VALVE DISEASE [None]
  - OBESITY [None]
  - TYPE 2 DIABETES MELLITUS [None]
  - CARDIAC DISORDER [None]
